FAERS Safety Report 5537394-X (Version None)
Quarter: 2007Q4

REPORT INFORMATION
  Report Type: 
  Country: None (occurrence: None)
  Receive Date: 20071207
  Receipt Date: 20071129
  Transmission Date: 20080405
  Serious: Yes (Life-Threatening, Hospitalization)
  Sender: FDA-Public Use
  Company Number: B0491635A

PATIENT
  Age: 79 Year
  Sex: Male
  Weight: 64 kg

DRUGS (8)
  1. PAXIL [Suspect]
     Indication: DEPRESSION
     Dosage: 10MG PER DAY
     Route: 048
     Dates: start: 20071009, end: 20071015
  2. DOGMATYL [Suspect]
     Indication: DRUG USE FOR UNKNOWN INDICATION
     Dosage: 50MG TWICE PER DAY
     Route: 048
     Dates: start: 20071009, end: 20071015
  3. RESLIN [Suspect]
     Indication: DRUG USE FOR UNKNOWN INDICATION
     Dosage: 25MG PER DAY
     Route: 048
     Dates: start: 20071009, end: 20071015
  4. MEILAX [Concomitant]
     Dosage: 1MG PER DAY
     Route: 048
  5. DEPAS [Concomitant]
     Indication: ANXIETY
     Dosage: 1MG PER DAY
     Route: 048
  6. ARICEPT [Concomitant]
     Indication: DEMENTIA
     Dosage: 5MG PER DAY
     Route: 048
  7. ASPIRIN [Concomitant]
     Indication: CEREBRAL INFARCTION
     Dosage: 100MG PER DAY
     Route: 048
  8. NITOROL [Concomitant]
     Indication: ANGINA PECTORIS
     Dosage: 20MG PER DAY
     Route: 048

REACTIONS (8)
  - ABULIA [None]
  - AGRANULOCYTOSIS [None]
  - ANAEMIA [None]
  - CHILLS [None]
  - DEPRESSED LEVEL OF CONSCIOUSNESS [None]
  - INSOMNIA [None]
  - PANCYTOPENIA [None]
  - PYREXIA [None]
